FAERS Safety Report 6603151-6 (Version None)
Quarter: 2010Q1

REPORT INFORMATION
  Report Type: 
  Country: None (occurrence: None)
  Receive Date: 20100226
  Receipt Date: 20100223
  Transmission Date: 20100710
  Serious: Yes (Hospitalization)
  Sender: FDA-Public Use
  Company Number: DE-JNJFOC-20100210179

PATIENT
  Sex: Male
  Weight: 29 kg

DRUGS (2)
  1. REMICADE [Suspect]
     Indication: INFLAMMATORY BOWEL DISEASE
     Route: 042
  2. REMICADE [Suspect]
     Route: 042

REACTIONS (2)
  - INFUSION RELATED REACTION [None]
  - PYREXIA [None]
